FAERS Safety Report 9031435 (Version 2)
Quarter: 2013Q1

REPORT INFORMATION
  Report Type: Spontaneous
  Country: US (occurrence: US)
  Receive Date: 20130124
  Receipt Date: 20130307
  Transmission Date: 20140127
  Serious: Yes (Congenital Anomaly, Other)
  Sender: FDA-Public Use
  Company Number: US-PFIZER INC-2012069633

PATIENT
  Sex: Female

DRUGS (10)
  1. ZOLOFT [Suspect]
     Dosage: UNK
     Route: 064
     Dates: start: 2000, end: 2005
  2. PRENATAL VITAMINS [Concomitant]
     Dosage: UNK
     Route: 064
  3. ZYRTEC [Concomitant]
     Dosage: UNK
     Route: 064
  4. NASONEX [Concomitant]
     Dosage: UNK
     Route: 064
  5. ADVIL [Concomitant]
     Dosage: UNK
     Route: 064
  6. TYLENOL [Concomitant]
     Dosage: UNK
     Route: 064
  7. ACETAMINOPHEN W/CODEINE [Concomitant]
     Dosage: UNK
     Route: 064
     Dates: start: 20040924
  8. ACETAMINOPHEN W/CODEINE [Concomitant]
     Dosage: UNK
     Route: 064
     Dates: start: 20050227
  9. LOVENOX [Concomitant]
     Dosage: UNK
     Route: 064
     Dates: start: 20041222
  10. METROGEL-VAGINAL [Concomitant]
     Dosage: UNK
     Route: 064
     Dates: start: 20050302

REACTIONS (2)
  - Maternal exposure timing unspecified [Unknown]
  - Talipes [Unknown]
